FAERS Safety Report 7045030-9 (Version None)
Quarter: 2010Q4

REPORT INFORMATION
  Report Type: 
  Country: None (occurrence: None)
  Receive Date: 20101014
  Receipt Date: 20101006
  Transmission Date: 20110411
  Serious: Yes (Hospitalization)
  Sender: FDA-Public Use
  Company Number: PHHO2010US15326

PATIENT
  Sex: Male
  Weight: 97.052 kg

DRUGS (3)
  1. AFINITOR [Suspect]
     Indication: RENAL CELL CARCINOMA
     Dosage: 35 MG WEEKLY
     Route: 048
     Dates: start: 20100913
  2. COMPARATOR SORAFENIB [Suspect]
     Indication: RENAL CELL CARCINOMA
     Dosage: 400 MG, QD
     Route: 048
     Dates: start: 20100913
  3. COMPARATOR SORAFENIB [Suspect]
     Dosage: 200 MG, QD
     Route: 048
     Dates: start: 20100928

REACTIONS (1)
  - CEREBROVASCULAR ACCIDENT [None]
